FAERS Safety Report 17818875 (Version 2)
Quarter: 2020Q2

REPORT INFORMATION
  Report Type: Report from Study
  Country: FR (occurrence: FR)
  Receive Date: 20200522
  Receipt Date: 20200626
  Transmission Date: 20200714
  Serious: Yes (Hospitalization)
  Sender: FDA-Public Use
  Company Number: FR-ROCHE-2606116

PATIENT
  Age: 77 Year
  Sex: Female

DRUGS (4)
  1. RAMIPRIL. [Concomitant]
     Active Substance: RAMIPRIL
  2. LEVOTHYROX [Concomitant]
     Active Substance: LEVOTHYROXINE
  3. BLINDED ATEZOLIZUMAB [Suspect]
     Active Substance: ATEZOLIZUMAB
     Indication: OVARIAN CANCER
     Dosage: ON 18/MAR/2020 HE RECEIVED LAST DOSE OF ATEZOLIZUMAB (1200 MG).
     Route: 042
     Dates: start: 20181217
  4. BEVACIZUMAB. [Suspect]
     Active Substance: BEVACIZUMAB
     Indication: OVARIAN CANCER
     Dosage: ON 18/MAR/2020 HE RECEIVED LAST DOSE OF BEVACIZUMAB (15 MG/KG).
     Route: 042
     Dates: start: 20181217

REACTIONS (1)
  - Cardiac dysfunction [Not Recovered/Not Resolved]

NARRATIVE: CASE EVENT DATE: 20200515
